FAERS Safety Report 16058057 (Version 2)
Quarter: 2019Q2

REPORT INFORMATION
  Report Type: Spontaneous
  Country: US (occurrence: US)
  Receive Date: 20190311
  Receipt Date: 20190417
  Transmission Date: 20190711
  Serious: Yes (Disabling)
  Sender: FDA-Public Use
  Company Number: US-AMREGENT-20190429

PATIENT
  Age: 40 Year
  Sex: Female

DRUGS (5)
  1. ACETAZOLAMIDE. [Concomitant]
     Active Substance: ACETAZOLAMIDE
     Dosage: 250 MG FOUR TIMES DAILY
     Route: 048
  2. ATORVASTATIN [Concomitant]
     Active Substance: ATORVASTATIN
     Dosage: 20 MG DAILY
     Route: 048
  3. AMITRIPTYLINE [Concomitant]
     Active Substance: AMITRIPTYLINE
     Dosage: (4)25 MG/ 100 MG DAILY BEDTIME
     Route: 048
  4. INJECTAFER [Suspect]
     Active Substance: FERRIC CARBOXYMALTOSE
     Dosage: 750 MG
     Route: 042
     Dates: start: 20190228, end: 20190228
  5. JARDIANCE [Concomitant]
     Active Substance: EMPAGLIFLOZIN
     Dosage: 10 MG DAILY
     Route: 048

REACTIONS (2)
  - Hyperglycaemia [Recovered/Resolved with Sequelae]
  - Presyncope [Recovered/Resolved with Sequelae]

NARRATIVE: CASE EVENT DATE: 20190301
